FAERS Safety Report 9676390 (Version 1)
Quarter: 2013Q4

REPORT INFORMATION
  Report Type: Spontaneous
  Country: US (occurrence: None)
  Receive Date: 20131106
  Receipt Date: 20131106
  Transmission Date: 20140711
  Serious: Yes (Death, Other)
  Sender: FDA-Public Use
  Company Number: 2013AP009397

PATIENT
  Sex: Male

DRUGS (1)
  1. OXCARBAZEPINE [Suspect]

REACTIONS (4)
  - Drug prescribing error [None]
  - Potentiating drug interaction [None]
  - Completed suicide [None]
  - Suicidal ideation [None]
